FAERS Safety Report 19553041 (Version 1)
Quarter: 2021Q3

REPORT INFORMATION
  Report Type: Report from Study
  Country: DE (occurrence: DE)
  Receive Date: 20210715
  Receipt Date: 20210715
  Transmission Date: 20211014
  Serious: Yes (Other)
  Sender: FDA-Public Use
  Company Number: DE-TEVA-2021-DE-1931485

PATIENT
  Age: 45 Year

DRUGS (8)
  1. ACICLOVIR [Suspect]
     Active Substance: ACYCLOVIR
     Indication: ANTIVIRAL PROPHYLAXIS
     Dosage: 400MG THREE TIMES/DAY
     Route: 048
  2. FLUDARABINE [Concomitant]
     Active Substance: FLUDARABINE PHOSPHATE
     Indication: LEUKAEMIA RECURRENT
     Dosage: SALVAGE THERAPY
     Route: 065
  3. IDARUBICIN [Concomitant]
     Active Substance: IDARUBICIN
     Indication: LEUKAEMIA RECURRENT
     Dosage: SALVAGE THERAPY
     Route: 065
  4. 5?AZACYTIDINE [Concomitant]
     Active Substance: AZACITIDINE
     Indication: LEUKAEMIA RECURRENT
     Route: 065
  5. ACICLOVIR [Suspect]
     Active Substance: ACYCLOVIR
     Indication: ANTIVIRAL TREATMENT
     Dosage: AT A DOSE OF 5?10 MG/KG BODY WEIGHT THREE TIMES/DAY
     Route: 042
  6. CYTARABINE. [Concomitant]
     Active Substance: CYTARABINE
     Indication: LEUKAEMIA RECURRENT
     Dosage: SALVAGE THERAPY
     Route: 065
  7. ACICLOVIR CREAM [Suspect]
     Active Substance: ACYCLOVIR
     Indication: ANTIVIRAL TREATMENT
     Dosage: LOCAL THERAPY
     Route: 061
  8. VENETOCLAX. [Concomitant]
     Active Substance: VENETOCLAX
     Indication: LEUKAEMIA RECURRENT
     Route: 065

REACTIONS (1)
  - Pathogen resistance [Recovered/Resolved]
